FAERS Safety Report 20306661 (Version 2)
Quarter: 2022Q1

REPORT INFORMATION
  Report Type: Spontaneous
  Country: US (occurrence: US)
  Receive Date: 20220106
  Receipt Date: 20220121
  Transmission Date: 20220423
  Serious: Yes (Hospitalization, Other)
  Sender: FDA-Public Use
  Company Number: US-TEVA-2021-US-1995673

PATIENT
  Age: 36 Year
  Sex: Male

DRUGS (4)
  1. HYDROXYUREA [Suspect]
     Active Substance: HYDROXYUREA
     Indication: Eosinophilia
     Dosage: 500 MILLIGRAM DAILY;
     Route: 065
  2. IMATINIB [Suspect]
     Active Substance: IMATINIB
     Indication: Chronic eosinophilic leukaemia
     Dosage: 200 MILLIGRAM DAILY;
     Route: 065
  3. IMATINIB [Suspect]
     Active Substance: IMATINIB
     Dosage: 100 MILLIGRAM DAILY;
     Route: 065
  4. DASATINIB [Suspect]
     Active Substance: DASATINIB
     Indication: Chronic eosinophilic leukaemia
     Dosage: 140 MILLIGRAM DAILY;
     Route: 065

REACTIONS (6)
  - Arthralgia [Unknown]
  - Dermatitis [Unknown]
  - Pleural effusion [Unknown]
  - Cardiac tamponade [Unknown]
  - Drug resistance [Unknown]
  - Drug ineffective [Unknown]
